FAERS Safety Report 7283436-3 (Version None)
Quarter: 2011Q1

REPORT INFORMATION
  Report Type: 
  Country: None (occurrence: None)
  Receive Date: 20110125
  Receipt Date: 20110106
  Transmission Date: 20110831
  Serious: Yes (Death, Hospitalization, Other)
  Sender: FDA-Public Use
  Company Number: 2010P1002152

PATIENT
  Age: 67 Year
  Sex: Female

DRUGS (7)
  1. VITAMIN B-12 [Concomitant]
  2. KEPPRA [Concomitant]
  3. FOSAMAX [Concomitant]
  4. CALCIUM PLUS D [Concomitant]
  5. MULTI-VITAMIN [Concomitant]
  6. PANTOPRAZOLE [Concomitant]
  7. CARBAMAZEPINE [Suspect]
     Indication: CONVULSION
     Dosage: 100 MG; QID; PO
     Route: 048
     Dates: start: 20090130, end: 20090212

REACTIONS (37)
  - STEVENS-JOHNSON SYNDROME [None]
  - PYREXIA [None]
  - ACUTE RESPIRATORY DISTRESS SYNDROME [None]
  - ESCHERICHIA TEST POSITIVE [None]
  - MULTIPLE-DRUG RESISTANCE [None]
  - BLOOD HYPOSMOSIS [None]
  - ESSENTIAL HYPERTENSION [None]
  - BLOOD CALCIUM DECREASED [None]
  - INAPPROPRIATE ANTIDIURETIC HORMONE SECRETION [None]
  - TOXIC EPIDERMAL NECROLYSIS [None]
  - HYPERNATRAEMIA [None]
  - RESPIRATORY FAILURE [None]
  - PNEUMONIA STAPHYLOCOCCAL [None]
  - CONVULSION [None]
  - ATRIAL FIBRILLATION [None]
  - ACINETOBACTER TEST POSITIVE [None]
  - CANDIDA TEST POSITIVE [None]
  - HYPEROSMOLAR STATE [None]
  - BLOOD GLUCOSE INCREASED [None]
  - HYPONATRAEMIA [None]
  - BENIGN NEOPLASM OF SKIN [None]
  - BLOOD ALBUMIN DECREASED [None]
  - CONTINUOUS HAEMODIAFILTRATION [None]
  - CARDIAC ARREST [None]
  - COAGULOPATHY [None]
  - LEUKOPENIA [None]
  - CORNEAL DEGENERATION [None]
  - METABOLIC DISORDER [None]
  - PLATELET COUNT DECREASED [None]
  - MEAN CELL VOLUME INCREASED [None]
  - SEPTIC SHOCK [None]
  - HYPOTENSION [None]
  - PLEURAL EFFUSION [None]
  - GENERAL PHYSICAL HEALTH DETERIORATION [None]
  - RENAL FAILURE ACUTE [None]
  - UROGENITAL INFECTION FUNGAL [None]
  - ANAEMIA [None]
